FAERS Safety Report 5227690-8 (Version None)
Quarter: 2007Q1

REPORT INFORMATION
  Report Type: 
  Country: None (occurrence: None)
  Receive Date: 20070202
  Receipt Date: 20070125
  Transmission Date: 20070707
  Serious: Yes (Hospitalization)
  Sender: FDA-Public Use
  Company Number: US-ABBOTT-06P-163-0352322-00

PATIENT
  Sex: Female
  Weight: 101 kg

DRUGS (2)
  1. HUMIRA [Suspect]
     Indication: RHEUMATOID ARTHRITIS
     Route: 058
     Dates: start: 20050101, end: 20050801
  2. OMEPRAZOLE [Concomitant]
     Indication: GASTROOESOPHAGEAL REFLUX DISEASE

REACTIONS (9)
  - ANGIOEDEMA [None]
  - DIARRHOEA [None]
  - HAEMORRHOIDS [None]
  - OEDEMA PERIPHERAL [None]
  - PHARYNGEAL OEDEMA [None]
  - PNEUMONIA [None]
  - PRURITUS [None]
  - RASH PRURITIC [None]
  - SPINAL COLUMN STENOSIS [None]
